FAERS Safety Report 7415310-3 (Version None)
Quarter: 2011Q2

REPORT INFORMATION
  Report Type: 
  Country: None (occurrence: None)
  Receive Date: 20110414
  Receipt Date: 20110405
  Transmission Date: 20111010
  Serious: Yes (Hospitalization)
  Sender: FDA-Public Use
  Company Number: IT-ASTRAZENECA-2011SE19162

PATIENT
  Age: 30779 Day
  Sex: Female

DRUGS (6)
  1. ASPIRIN [Concomitant]
  2. SEROQUEL XR [Suspect]
     Route: 048
     Dates: start: 20101109, end: 20101109
  3. INSULIN [Concomitant]
  4. LYRICA [Concomitant]
  5. MEPRAL [Concomitant]
  6. NICHOLIN [Concomitant]

REACTIONS (4)
  - HEAD INJURY [None]
  - SOMNOLENCE [None]
  - BLOOD PRESSURE DECREASED [None]
  - FALL [None]
